FAERS Safety Report 14355081 (Version 4)
Quarter: 2018Q1

REPORT INFORMATION
  Report Type: Spontaneous
  Country: US (occurrence: US)
  Receive Date: 20180105
  Receipt Date: 20180219
  Transmission Date: 20180509
  Serious: Yes (Other)
  Sender: FDA-Public Use
  Company Number: US-PFIZER INC-2018003299

PATIENT
  Age: 79 Year
  Sex: Male
  Weight: 72.56 kg

DRUGS (3)
  1. GABAPENTIN. [Suspect]
     Active Substance: GABAPENTIN
     Indication: BURNING SENSATION
     Dosage: 800 MG, 2 IN THE MORNING AND 2 IN THE EVENING
     Route: 048
  2. COQ 10 [Concomitant]
     Active Substance: UBIDECARENONE
     Indication: SUPPLEMENTATION THERAPY
     Dosage: 5 MG, UNK
     Route: 048
  3. METFORMIN [Concomitant]
     Active Substance: METFORMIN HYDROCHLORIDE
     Indication: DIABETES MELLITUS
     Dosage: UNK

REACTIONS (13)
  - Hypoacusis [Unknown]
  - Dizziness [Recovering/Resolving]
  - Middle insomnia [Unknown]
  - Burning sensation [Unknown]
  - Drug ineffective for unapproved indication [Unknown]
  - Fatigue [Recovering/Resolving]
  - Visual acuity reduced [Unknown]
  - Somnolence [Unknown]
  - Condition aggravated [Unknown]
  - Feeling drunk [Unknown]
  - Insomnia [Unknown]
  - Vision blurred [Unknown]
  - Feeling abnormal [Unknown]
